FAERS Safety Report 9445138 (Version 1)
Quarter: 2013Q3

REPORT INFORMATION
  Report Type: Spontaneous
  Country: US (occurrence: US)
  Receive Date: 20130807
  Receipt Date: 20130807
  Transmission Date: 20140515
  Serious: No
  Sender: FDA-Public Use
  Company Number: US-BAXTER-2013BAX030685

PATIENT
  Sex: Male

DRUGS (5)
  1. CYTOXAN (CYCLOPHOSPHAMIDE FOR INJECTION, USP) 1 GRAM VIAL (LYOPHILIZE [Suspect]
     Indication: PLASMA CELL MYELOMA
     Route: 065
  2. LENALIDOMIDE [Suspect]
     Indication: PLASMA CELL MYELOMA
     Route: 065
  3. BORTEZOMIB [Suspect]
     Indication: PLASMA CELL MYELOMA
     Route: 065
  4. CARFILZOMIB [Suspect]
     Indication: PLASMA CELL MYELOMA
     Route: 065
  5. DEX [Suspect]
     Indication: PLASMA CELL MYELOMA
     Route: 065

REACTIONS (1)
  - Therapeutic response decreased [Unknown]
